FAERS Safety Report 13372818 (Version 1)
Quarter: 2017Q1

REPORT INFORMATION
  Report Type: Spontaneous
  Country: US (occurrence: US)
  Receive Date: 20170325
  Receipt Date: 20170325
  Transmission Date: 20170429
  Serious: Yes (Life-Threatening, Disabling)
  Sender: FDA-Public Use
  Company Number: None

PATIENT
  Age: 73 Year
  Sex: Male
  Weight: 90 kg

DRUGS (3)
  1. ACTOS [Suspect]
     Active Substance: PIOGLITAZONE HYDROCHLORIDE
     Indication: BLOOD GLUCOSE INCREASED
     Dosage: ?          QUANTITY:1 TABLET(S);?
     Route: 048
     Dates: start: 20170301, end: 20170324
  2. ALBUTEROL. [Concomitant]
     Active Substance: ALBUTEROL
  3. METFORMIN [Concomitant]
     Active Substance: METFORMIN HYDROCHLORIDE

REACTIONS (8)
  - Dizziness [None]
  - Product substitution issue [None]
  - Dyspnoea [None]
  - Impaired driving ability [None]
  - Activities of daily living impaired [None]
  - Respiratory tract infection [None]
  - Asphyxia [None]
  - Gait disturbance [None]

NARRATIVE: CASE EVENT DATE: 20170324
